FAERS Safety Report 12633048 (Version 2)
Quarter: 2016Q3

REPORT INFORMATION
  Report Type: Spontaneous
  Country: US (occurrence: US)
  Receive Date: 20160808
  Receipt Date: 20160808
  Transmission Date: 20161109
  Serious: No
  Sender: FDA-Public Use
  Company Number: US-BEH-2016058267

PATIENT
  Age: 61 Year
  Sex: Female
  Weight: 106 kg

DRUGS (23)
  1. HIZENTRA [Suspect]
     Active Substance: HUMAN IMMUNOGLOBULIN G
     Indication: HYPOGAMMAGLOBULINAEMIA
     Route: 058
  2. HIZENTRA [Suspect]
     Active Substance: HUMAN IMMUNOGLOBULIN G
     Dates: start: 20120529
  3. ACETAMINOPHEN. [Concomitant]
     Active Substance: ACETAMINOPHEN
  4. DIPHENHYDRAMINE. [Concomitant]
     Active Substance: DIPHENHYDRAMINE
  5. MILK OF MAGNESIA [Concomitant]
     Active Substance: MAGNESIUM HYDROXIDE
  6. IBUPROFEN. [Concomitant]
     Active Substance: IBUPROFEN
  7. EPIPEN [Concomitant]
     Active Substance: EPINEPHRINE
  8. NEXIUM [Concomitant]
     Active Substance: ESOMEPRAZOLE MAGNESIUM
  9. EVOXAC [Concomitant]
     Active Substance: CEVIMELINE HYDROCHLORIDE
  10. OTHER ANTIDIARRHOEALS [Concomitant]
  11. HIZENTRA [Suspect]
     Active Substance: HUMAN IMMUNOGLOBULIN G
     Route: 058
  12. CALTRATE WITH VIT D [Concomitant]
  13. RESTASIS [Concomitant]
     Active Substance: CYCLOSPORINE
  14. METHOTREXATE. [Concomitant]
     Active Substance: METHOTREXATE
  15. ZITHROMAX [Concomitant]
     Active Substance: AZITHROMYCIN DIHYDRATE
  16. TRAZODONE [Concomitant]
     Active Substance: TRAZODONE HYDROCHLORIDE
  17. LYRICA [Concomitant]
     Active Substance: PREGABALIN
  18. TRICOR [Concomitant]
     Active Substance: FENOFIBRATE
  19. VALIUM [Concomitant]
     Active Substance: DIAZEPAM
  20. FOLIC ACID. [Concomitant]
     Active Substance: FOLIC ACID
  21. LIDOCAINE/PRILOCAINE [Concomitant]
     Active Substance: LIDOCAINE\PRILOCAINE
  22. PROVENTIL [Concomitant]
     Active Substance: ALBUTEROL
  23. FLEXERIL [Concomitant]
     Active Substance: CYCLOBENZAPRINE HYDROCHLORIDE

REACTIONS (3)
  - Upper respiratory tract infection [Unknown]
  - Bronchitis [Unknown]
  - Infusion site swelling [Unknown]

NARRATIVE: CASE EVENT DATE: 201510
